FAERS Safety Report 17484121 (Version 1)
Quarter: 2020Q1

REPORT INFORMATION
  Report Type: Report from Study
  Country: US (occurrence: US)
  Receive Date: 20200302
  Receipt Date: 20200302
  Transmission Date: 20200409
  Serious: Yes (Other)
  Sender: FDA-Public Use
  Company Number: US-MYLANLABS-2020M1009480

PATIENT
  Age: 36 Year
  Sex: Female
  Weight: 118 kg

DRUGS (2)
  1. GLATIRAMER ACETATE INJECTION [Suspect]
     Active Substance: GLATIRAMER ACETATE
     Dosage: 40 MILLIGRAM, 3XW
     Dates: start: 20200218
  2. GLATIRAMER ACETATE INJECTION [Suspect]
     Active Substance: GLATIRAMER ACETATE
     Indication: RELAPSING-REMITTING MULTIPLE SCLEROSIS
     Dosage: 40 MILLIGRAM, 3XW

REACTIONS (8)
  - Dizziness [Unknown]
  - Incorrect route of product administration [Unknown]
  - Somnolence [Unknown]
  - Feeling abnormal [Unknown]
  - Injection site erythema [Unknown]
  - Vomiting [Unknown]
  - Hypoacusis [Unknown]
  - Sinusitis [Unknown]

NARRATIVE: CASE EVENT DATE: 20200218
